FAERS Safety Report 13460317 (Version 2)
Quarter: 2017Q3

REPORT INFORMATION
  Report Type: Report from Study
  Country: US (occurrence: US)
  Receive Date: 20170420
  Receipt Date: 20170703
  Transmission Date: 20171127
  Serious: No
  Sender: FDA-Public Use
  Company Number: US-ALEXION PHARMACEUTICALS INC.-A201703873

PATIENT
  Sex: Female

DRUGS (1)
  1. SOLIRIS [Suspect]
     Active Substance: ECULIZUMAB
     Indication: PAROXYSMAL NOCTURNAL HAEMOGLOBINURIA
     Dosage: 900 MG, Q2W
     Route: 042
     Dates: start: 20081031

REACTIONS (6)
  - Gastric infection [Recovered/Resolved]
  - Haemoglobin decreased [Unknown]
  - Sinusitis [Recovered/Resolved]
  - Inappropriate schedule of drug administration [Unknown]
  - Iron overload [Unknown]
  - Serum ferritin abnormal [Unknown]

NARRATIVE: CASE EVENT DATE: 20170401
